FAERS Safety Report 6640341-0 (Version None)
Quarter: 2010Q1

REPORT INFORMATION
  Report Type: 
  Country: None (occurrence: None)
  Receive Date: 20100303
  Receipt Date: 20091022
  Transmission Date: 20100710
  Serious: Yes (Hospitalization)
  Sender: FDA-Public Use
  Company Number: 293199

PATIENT
  Age: 87 Year
  Sex: Female

DRUGS (14)
  1. NOVOLIN R [Suspect]
     Indication: INSULIN-REQUIRING TYPE 2 DIABETES MELLITUS
     Dosage: SLIDING SCALE, SUBCUTANEOUS
     Route: 058
     Dates: start: 20070101
  2. PRILOSEC [Concomitant]
  3. CARVEDILOL [Concomitant]
  4. LISINOPRIL [Concomitant]
  5. DIXEN (DICLOXACILLIN SODIUM MONOHYDRATE) [Concomitant]
  6. LASIX [Concomitant]
  7. VISION PLUS (POLYVINYL ALCOHOL) [Concomitant]
  8. TRAVATAN [Concomitant]
  9. AZOPT [Concomitant]
  10. REMERON [Concomitant]
  11. OXYGEN (OXYGEN) [Concomitant]
  12. NAMENDA [Concomitant]
  13. ARICEPT [Concomitant]
  14. CALCIUM (CALCIUM) [Concomitant]

REACTIONS (1)
  - BLOOD GLUCOSE INCREASED [None]
